FAERS Safety Report 9254812 (Version 1)
Quarter: 2013Q2

REPORT INFORMATION
  Report Type: Spontaneous
  Country: US (occurrence: US)
  Receive Date: 20130425
  Receipt Date: 20130425
  Transmission Date: 20140414
  Serious: Yes (Hospitalization)
  Sender: FDA-Public Use
  Company Number: US-BAYER-2013-051473

PATIENT
  Age: 33 Year
  Sex: Female
  Weight: 63.95 kg

DRUGS (9)
  1. YAZ [Suspect]
  2. MALARONE [Concomitant]
     Dosage: UNK
     Dates: start: 20101019
  3. CIPRO [Concomitant]
     Dosage: UNK
     Dates: start: 20101019
  4. IMODIUM [Concomitant]
     Dosage: UNK
     Dates: start: 20101019
  5. PEPTO BISMOL [Concomitant]
     Dosage: UNK
     Dates: start: 20101019
  6. TWINRIX [Concomitant]
  7. TYPHIM VI [Concomitant]
  8. YELLOW FEVER VACCINE [Concomitant]
  9. ACETAMINOPHEN [Concomitant]

REACTIONS (1)
  - Deep vein thrombosis [None]
